FAERS Safety Report 8603086 (Version 2)
Quarter: 2012Q4

REPORT INFORMATION
  Report Type: Report from Study
  Country: SE (occurrence: SE)
  Receive Date: 20120607
  Receipt Date: 20121005
  Transmission Date: 20130627
  Serious: Yes (Hospitalization, Other)
  Sender: FDA-Public Use
  Company Number: SE-ROCHE-1061410

PATIENT
  Age: 54 Year
  Sex: Female
  Weight: 69 kg

DRUGS (4)
  1. MABTHERA [Suspect]
     Indication: B-CELL LYMPHOMA
     Dosage: Last Dose prior to SAE: 12/Apr/2012, cycle 1, induction therapy
     Route: 042
     Dates: start: 20120315
  2. MABTHERA [Suspect]
     Indication: B-CELL LYMPHOMA
     Dosage: maintainance therapy
     Route: 058
     Dates: start: 20120412
  3. BENDAMUSTINE [Suspect]
     Indication: B-CELL LYMPHOMA
     Route: 065
     Dates: start: 20120327, end: 20120327
  4. BETAMETAZON [Concomitant]
     Indication: INFLAMMATION
     Route: 065
     Dates: start: 20120327, end: 20120327

REACTIONS (2)
  - Skin reaction [Recovered/Resolved]
  - Febrile neutropenia [Recovered/Resolved]
